FAERS Safety Report 6689793-0 (Version None)
Quarter: 2010Q2

REPORT INFORMATION
  Report Type: 
  Country: None (occurrence: None)
  Receive Date: 20100421
  Receipt Date: 20100413
  Transmission Date: 20101027
  Serious: Yes (Other)
  Sender: FDA-Public Use
  Company Number: US-BAYER-201014231BCC

PATIENT
  Age: 56 Year
  Sex: Male
  Weight: 98 kg

DRUGS (6)
  1. ALEVE (CAPLET) [Suspect]
     Indication: ARTHRALGIA
     Dosage: UNIT DOSE: 220 MG
     Route: 048
     Dates: start: 20080101, end: 20090101
  2. ALEVE [Suspect]
     Indication: ARTHRALGIA
     Dosage: UNIT DOSE: 220 MG
     Route: 048
     Dates: start: 20080101, end: 20090101
  3. ASPIRIN [Concomitant]
  4. TAVASTIN [Concomitant]
  5. FENOFIBRATE [Concomitant]
  6. AMLODIPINE [Concomitant]

REACTIONS (1)
  - CROHN'S DISEASE [None]
